FAERS Safety Report 7260795-9 (Version None)
Quarter: 2011Q1

REPORT INFORMATION
  Report Type: 
  Country: None (occurrence: None)
  Receive Date: 20110130
  Receipt Date: 20101122
  Transmission Date: 20110831
  Serious: No
  Sender: FDA-Public Use
  Company Number: US-ABBOTT-10P-163-0687227-00

PATIENT
  Sex: Female
  Weight: 63.56 kg

DRUGS (4)
  1. SULFASALAZINE [Concomitant]
     Indication: RHEUMATOID ARTHRITIS
     Dosage: 2 IN THE MORNING AND 2 AT NIGHT.
     Dates: end: 20101101
  2. HUMIRA [Suspect]
     Indication: RHEUMATOID ARTHRITIS
     Route: 058
     Dates: start: 20090801
  3. PREDNISONE [Concomitant]
     Indication: RHEUMATOID ARTHRITIS
     Dates: end: 20101001
  4. PREDNISONE [Concomitant]
     Dates: start: 20101101

REACTIONS (4)
  - JOINT STIFFNESS [None]
  - MUSCULOSKELETAL STIFFNESS [None]
  - PAIN IN EXTREMITY [None]
  - DRUG INEFFECTIVE [None]
